FAERS Safety Report 9093357 (Version 1)
Quarter: 2013Q1

REPORT INFORMATION
  Report Type: Spontaneous
  Country: US (occurrence: None)
  Receive Date: 20130122
  Receipt Date: 20130122
  Transmission Date: 20140127
  Serious: Yes (Death)
  Sender: FDA-Public Use
  Company Number: 1552801

PATIENT
  Age: 38 Year
  Sex: Female

DRUGS (3)
  1. FENTANYL CITRATE [Suspect]
     Dosage: NOT REPORTED
  2. MORPHINE SULPHATE [Suspect]
     Dosage: NOT REPORTED
  3. VENLAFAXINE [Suspect]
     Dosage: NOT REPORTED

REACTIONS (4)
  - Cardiac arrest [None]
  - Respiratory arrest [None]
  - Intentional drug misuse [None]
  - Poisoning [None]
